FAERS Safety Report 8611497-5 (Version None)
Quarter: 2012Q3

REPORT INFORMATION
  Report Type: 
  Country: None (occurrence: None)
  Receive Date: 20120822
  Receipt Date: 20120813
  Transmission Date: 20120928
  Serious: Yes (Hospitalization, Other)
  Sender: FDA-Public Use
  Company Number: US-ASTRAZENECA-2012SE37104

PATIENT
  Age: 60 Year
  Sex: Male

DRUGS (13)
  1. SEROQUEL XR [Suspect]
     Route: 048
  2. MULTIPLE VITAMIN [Concomitant]
     Route: 048
  3. GARLIC [Concomitant]
     Route: 048
  4. GLUCOSAMINE [Concomitant]
     Route: 048
  5. CASCARA SAGRADA [Concomitant]
     Route: 048
  6. ACCUPRIL [Concomitant]
     Route: 048
     Dates: start: 20120514
  7. ZOCOR [Concomitant]
     Route: 048
     Dates: start: 20120514
  8. PLAVIX [Concomitant]
     Route: 048
     Dates: start: 20120531
  9. COREG [Concomitant]
     Dosage: 3.125 MG, TWO TIMES A DAY, WITH MEALS
     Route: 048
     Dates: start: 20120514
  10. CHONDROITIN [Concomitant]
  11. NORCO [Concomitant]
     Dosage: 5-325 MG, 1-2 TABLETS, FOUR TIMES A DAY, AT NIGHT, AS REQUIRED
     Route: 048
     Dates: start: 20120514
  12. VITAMIN C CR [Concomitant]
     Route: 048
  13. ASPIRIN [Concomitant]
     Route: 048
     Dates: start: 20120514

REACTIONS (10)
  - TRANSIENT ISCHAEMIC ATTACK [None]
  - PRESYNCOPE [None]
  - ARTERIOSCLEROSIS [None]
  - ARTHRITIS [None]
  - CORONARY ARTERY DISEASE [None]
  - ISCHAEMIC CARDIOMYOPATHY [None]
  - DEPRESSION [None]
  - CEREBELLAR INFARCTION [None]
  - RHYTHM IDIOVENTRICULAR [None]
  - TROPONIN INCREASED [None]
